FAERS Safety Report 23300145 (Version 1)
Quarter: 2023Q4

REPORT INFORMATION
  Report Type: Spontaneous
  Country: US (occurrence: US)
  Receive Date: 20231215
  Receipt Date: 20231215
  Transmission Date: 20240110
  Serious: Yes (Hospitalization)
  Sender: FDA-Public Use
  Company Number: US-STRIDES ARCOLAB LIMITED-2023SP015343

PATIENT

DRUGS (4)
  1. PROPRANOLOL [Suspect]
     Active Substance: PROPRANOLOL HYDROCHLORIDE
     Indication: Tachycardia foetal
     Dosage: 0.43 MILLIGRAM/KILOGRAM, EVERY 6 HRS (TOTAL DAILY DOSE 1.7 MG/KG/DAY)
     Route: 048
  2. DIGOXIN [Suspect]
     Active Substance: DIGOXIN
     Indication: Tachycardia foetal
     Dosage: UNK
     Route: 065
  3. DEXTROSE [Concomitant]
     Active Substance: DEXTROSE\DEXTROSE MONOHYDRATE
     Indication: Hypoglycaemia neonatal
     Dosage: UNK (INITIAL DOSE NOT STATED)
     Route: 042
  4. DEXTROSE [Concomitant]
     Active Substance: DEXTROSE\DEXTROSE MONOHYDRATE
     Dosage: UNK (INFUSION RATE OF 12 MG/KG/MINUTE, FOR NEONATAL HYPOGLYCAEMIA)
     Route: 042

REACTIONS (3)
  - Hypoglycaemia neonatal [Unknown]
  - Therapy non-responder [Unknown]
  - Off label use [Unknown]
